FAERS Safety Report 4099756 (Version 3)
Quarter: 2017Q1

REPORT INFORMATION
  Report Type: Spontaneous
  Country: JP (occurrence: JP)
  Receive Date: 20040302
  Receipt Date: 20170213
  Transmission Date: 20170429
  Serious: Yes (Hospitalization, Other)
  Sender: FDA-Public Use
  Company Number: JP-BRISTOL-MYERS SQUIBB COMPANY-12512695

PATIENT
  Age: 26 Year
  Sex: Male

DRUGS (2)
  1. NOVANTRONE [Suspect]
     Active Substance: MITOXANTRONE HYDROCHLORIDE
     Indication: CHRONIC MYELOID LEUKAEMIA
     Dosage: 5 MG, QD
     Route: 065
     Dates: start: 20020517, end: 20020519
  2. VEPESID [Suspect]
     Active Substance: ETOPOSIDE
     Indication: CHRONIC MYELOID LEUKAEMIA
     Dosage: 200 MG, QD
     Route: 065
     Dates: start: 20020517, end: 20020519

REACTIONS (4)
  - Multiple organ dysfunction syndrome [Recovered/Resolved]
  - Retroperitoneal neoplasm [Recovered/Resolved]
  - White blood cell count decreased [Recovered/Resolved]
  - Blood lactate dehydrogenase increased [Recovered/Resolved]
